FAERS Safety Report 4444047-8 (Version None)
Quarter: 2004Q3

REPORT INFORMATION
  Report Type: 
  Country: None (occurrence: None)
  Receive Date: 20040729
  Receipt Date: 20040428
  Transmission Date: 20050211
  Serious: Yes (Other)
  Sender: FDA-Public Use
  Company Number: US-JNJFOC-20031006232

PATIENT
  Age: 87 Year
  Sex: Female
  Weight: 60.9634 kg

DRUGS (12)
  1. RISPERDAL [Suspect]
     Indication: BIPOLAR DISORDER
     Dosage: SEE IMAGE
     Route: 048
     Dates: start: 20030929
  2. RISPERDAL [Suspect]
     Indication: DEMENTIA
     Dosage: SEE IMAGE
     Route: 048
     Dates: start: 20030929
  3. CELEBREX [Suspect]
     Indication: ARTHRITIS
     Dosage: 100 MG, 1 IN 1 DAY, ORAL
     Route: 048
  4. ALLEGRA [Concomitant]
  5. ASPIRIN [Concomitant]
  6. SENOKOT S (SENOKOT-S) [Concomitant]
  7. DURAGESIC [Concomitant]
  8. NEURONTIN [Concomitant]
  9. FLONASE [Concomitant]
  10. MEDROL [Concomitant]
  11. DILANTIN [Concomitant]
  12. EXELON [Concomitant]

REACTIONS (4)
  - ANXIETY [None]
  - ELECTROCARDIOGRAM QT CORRECTED INTERVAL [None]
  - HYPOTENSION [None]
  - ORTHOSTATIC HYPOTENSION [None]
